FAERS Safety Report 5323904-4 (Version None)
Quarter: 2007Q2

REPORT INFORMATION
  Report Type: 
  Country: None (occurrence: None)
  Receive Date: 20070509
  Receipt Date: 20070509
  Transmission Date: 20071010
  Serious: Yes (Hospitalization)
  Sender: FDA-Public Use
  Company Number: None

PATIENT
  Age: 66 Year
  Sex: Female
  Weight: 47.6277 kg

DRUGS (2)
  1. WARFARIN SODIUM [Suspect]
     Indication: ATRIAL FIBRILLATION
     Dosage: 7.5 MG DAILY PO
     Route: 048
  2. ALEVE [Suspect]
     Dosage: 220 MG BID OROPHARINGEAL
     Route: 049

REACTIONS (5)
  - ANAEMIA [None]
  - GASTRIC ULCER [None]
  - MALLORY-WEISS SYNDROME [None]
  - OBSTRUCTION GASTRIC [None]
  - OESOPHAGEAL ULCER [None]
